FAERS Safety Report 12011448 (Version 1)
Quarter: 2016Q1

REPORT INFORMATION
  Report Type: Spontaneous
  Country: US (occurrence: US)
  Receive Date: 20160205
  Receipt Date: 20160205
  Transmission Date: 20160526
  Serious: No
  Sender: FDA-Public Use
  Company Number: US-GLAXOSMITHKLINE-US2016016289

PATIENT
  Age: 46 Year
  Sex: Female

DRUGS (1)
  1. NICORETTE FRESH MINT [Suspect]
     Active Substance: NICOTINE
     Indication: SMOKING CESSATION THERAPY
     Dosage: 2 MG, UNK
     Dates: end: 20160125

REACTIONS (5)
  - Drug ineffective [Unknown]
  - Diarrhoea [Recovered/Resolved]
  - Oral discomfort [Recovered/Resolved]
  - Abdominal discomfort [Recovered/Resolved]
  - Tongue eruption [Recovered/Resolved]
